FAERS Safety Report 20247594 (Version 2)
Quarter: 2022Q1

REPORT INFORMATION
  Report Type: Other
  Country: US (occurrence: None)
  Receive Date: 20211229
  Receipt Date: 20220303
  Transmission Date: 20220423
  Serious: Yes (Other)
  Sender: FDA-Public Use
  Company Number: US-ROCHE-2984346

PATIENT
  Sex: Female
  Weight: 64.922 kg

DRUGS (4)
  1. OCREVUS [Suspect]
     Active Substance: OCRELIZUMAB
     Indication: Relapsing-remitting multiple sclerosis
     Dosage: DATE OF INFUSION 20-MAR-2021, 26-SEP-2021
     Route: 042
     Dates: start: 20191003
  2. OCREVUS [Suspect]
     Active Substance: OCRELIZUMAB
     Dosage: REGULAR QUICK DOSE
     Route: 042
     Dates: start: 2019
  3. D-MANNOSE [Concomitant]
     Indication: Urinary tract infection
     Dosage: MIXES IN A GLASS OF WATER EVERY DAY
     Route: 048
     Dates: start: 2021
  4. VITAMIN B COMPLEX [Concomitant]
     Active Substance: CYANOCOBALAMIN\DEXPANTHENOL\NIACINAMIDE\PYRIDOXINE HYDROCHLORIDE\RIBOFLAVIN 5^-PHOSPHATE SODIUM\THIA

REACTIONS (6)
  - Urinary retention [Not Recovered/Not Resolved]
  - COVID-19 [Recovered/Resolved]
  - Gait disturbance [Recovering/Resolving]
  - Balance disorder [Recovering/Resolving]
  - Condition aggravated [Recovered/Resolved]
  - Urinary tract infection [Unknown]

NARRATIVE: CASE EVENT DATE: 20210101
